FAERS Safety Report 21770803 (Version 4)
Quarter: 2023Q2

REPORT INFORMATION
  Report Type: Report from Study
  Country: US (occurrence: US)
  Receive Date: 20221223
  Receipt Date: 20230522
  Transmission Date: 20230722
  Serious: No
  Sender: FDA-Public Use
  Company Number: US-002147023-NVSC2022US295240

PATIENT
  Sex: Male

DRUGS (1)
  1. ENTRESTO [Suspect]
     Active Substance: SACUBITRIL\VALSARTAN
     Indication: Product used for unknown indication
     Dosage: 1 DOSAGE FORM, BID (24/26 MG) (3 DAYS A WEEK)
     Route: 065
     Dates: start: 20221129

REACTIONS (5)
  - Dry throat [Unknown]
  - Thirst [Unknown]
  - Throat clearing [Unknown]
  - Hypotension [Recovering/Resolving]
  - Dizziness [Unknown]
